FAERS Safety Report 25528735 (Version 2)
Quarter: 2025Q3

REPORT INFORMATION
  Report Type: Spontaneous
  Country: US (occurrence: US)
  Receive Date: 20250708
  Receipt Date: 20250717
  Transmission Date: 20251021
  Serious: No
  Sender: Unknown Manufacturer
  Company Number: US-IONIS PHARMACEUTICALS, INC.-2025IS001238

PATIENT

DRUGS (21)
  1. TRYNGOLZA [Suspect]
     Active Substance: OLEZARSEN SODIUM
     Indication: Familial hypertriglyceridaemia
     Dosage: UNK, Q1M
     Route: 058
  2. CRESTOR [Concomitant]
     Active Substance: ROSUVASTATIN CALCIUM
     Indication: Pancreatitis chronic
     Dosage: 40 MILLIGRAM, QD AT BEDTIME
     Route: 048
  3. TRICOR [Concomitant]
     Active Substance: FENOFIBRATE
     Indication: Pancreatitis chronic
     Dosage: 145 MILLIGRAM, QD
     Route: 048
  4. TYLENOL EXTRA STRENGTH [Concomitant]
     Active Substance: ACETAMINOPHEN
     Indication: Product used for unknown indication
     Dosage: 1000 MILLIGRAM, TID
     Route: 048
  5. ADDERALL [Concomitant]
     Active Substance: AMPHETAMINE ASPARTATE\AMPHETAMINE SULFATE\DEXTROAMPHETAMINE SACCHARATE\DEXTROAMPHETAMINE SULFATE
     Indication: Product used for unknown indication
     Dosage: 30 MILLIGRAM, QD
     Route: 048
  6. BUSPAR [Concomitant]
     Active Substance: BUSPIRONE HYDROCHLORIDE
     Indication: Product used for unknown indication
     Dosage: 10 MILLIGRAM, BID
     Route: 048
  7. TUMS [Concomitant]
     Active Substance: CALCIUM CARBONATE
     Indication: Dyspepsia
     Dosage: 1000 MILLIGRAM, Q4H
     Route: 048
  8. CARBOXYMETHYLCELLULOSE SODIUM [Concomitant]
     Active Substance: CARBOXYMETHYLCELLULOSE SODIUM
     Indication: Product used for unknown indication
     Dosage: 1 DROP, QID IN BOTH EYES
     Route: 047
  9. DOXEPIN HYDROCHLORIDE [Concomitant]
     Active Substance: DOXEPIN HYDROCHLORIDE
     Indication: Product used for unknown indication
     Route: 048
  10. GUAIFENESIN [Concomitant]
     Active Substance: GUAIFENESIN
     Indication: Productive cough
     Dosage: 400 MILLIGRAM, Q4H
     Route: 048
  11. VISTARIL [Concomitant]
     Active Substance: HYDROXYZINE PAMOATE
     Indication: Product used for unknown indication
     Dosage: 50 MILLIGRAM, TID
     Route: 048
  12. ADVIL 12 HORAS [Concomitant]
     Indication: Pain
     Dosage: 400 MILLIGRAM, Q4H
     Route: 048
  13. IMODIUM [Concomitant]
     Active Substance: LOPERAMIDE HYDROCHLORIDE
     Indication: Diarrhoea
     Route: 048
  14. IMODIUM [Concomitant]
     Active Substance: LOPERAMIDE HYDROCHLORIDE
     Route: 048
  15. ROBAXIN [Concomitant]
     Active Substance: METHOCARBAMOL
     Indication: Product used for unknown indication
     Dosage: 500 MILLIGRAM, TID
     Route: 048
  16. MILK OF MAGNESIA [Concomitant]
     Active Substance: MAGNESIUM HYDROXIDE
     Indication: Constipation
     Dosage: 15-30ML, QD
     Route: 048
  17. NEOMYCIN AND POLYMYXIN B SULFATES AND BACITRA [Concomitant]
     Route: 061
  18. ROXICODONE [Concomitant]
     Active Substance: OXYCODONE HYDROCHLORIDE
     Indication: Pain
     Dosage: 5-10MG, Q4H
     Route: 048
  19. SENNA S [Concomitant]
     Active Substance: DOCUSATE SODIUM\SENNOSIDES
     Indication: Constipation
     Dosage: 4 TABLETS, BID
     Route: 048
  20. VITAMIN A AND D [COLECALCIFEROL;RETINOL] [Concomitant]
     Indication: Product used for unknown indication
     Dosage: UNK, QD, AS NEEDED
     Route: 061
  21. MELATONIN [Concomitant]
     Active Substance: MELATONIN
     Indication: Sleep disorder
     Route: 048

REACTIONS (3)
  - Abdominal distension [Unknown]
  - Liver disorder [Unknown]
  - Hepatic steatosis [Unknown]

NARRATIVE: CASE EVENT DATE: 20250311
